FAERS Safety Report 5799476-7 (Version None)
Quarter: 2008Q3

REPORT INFORMATION
  Report Type: 
  Country: None (occurrence: None)
  Receive Date: 20080701
  Receipt Date: 20080619
  Transmission Date: 20090109
  Serious: Yes (Hospitalization, Other)
  Sender: FDA-Public Use
  Company Number: 2008BI015921

PATIENT
  Age: 55 Year
  Sex: Female
  Weight: 95.2554 kg

DRUGS (10)
  1. TYSABRI [Suspect]
     Indication: MULTIPLE SCLEROSIS
     Dosage: 300 MG;QM;IV
     Route: 042
     Dates: start: 20070717, end: 20080505
  2. PROVIGIL [Concomitant]
  3. NEURONTIN [Concomitant]
  4. DIAZEPAM [Concomitant]
  5. POTASSIUM CHLORIDE [Concomitant]
  6. METFORMIN [Concomitant]
  7. PRILOSEC [Concomitant]
  8. ELAVIL [Concomitant]
  9. IMODIUM [Concomitant]
  10. VIOXX [Concomitant]

REACTIONS (2)
  - LYMPHADENOPATHY [None]
  - MUCOEPIDERMOID CARCINOMA [None]
